FAERS Safety Report 7779993-0 (Version None)
Quarter: 2011Q3

REPORT INFORMATION
  Report Type: 
  Country: None (occurrence: None)
  Receive Date: 20110927
  Receipt Date: 20110901
  Transmission Date: 20111222
  Serious: No
  Sender: FDA-Public Use
  Company Number: US-JNJFOC-20110901869

PATIENT
  Age: 28 Year
  Sex: Female

DRUGS (1)
  1. INVEGA SUSTENNA [Suspect]
     Indication: BIPOLAR DISORDER
     Route: 030
     Dates: start: 20091101

REACTIONS (5)
  - BLOOD PROLACTIN INCREASED [None]
  - PRODUCT QUALITY ISSUE [None]
  - AMENORRHOEA [None]
  - BREAST DISCHARGE [None]
  - DISTURBANCE IN SOCIAL BEHAVIOUR [None]
